FAERS Safety Report 5328973-3 (Version None)
Quarter: 2007Q2

REPORT INFORMATION
  Report Type: 
  Country: None (occurrence: None)
  Receive Date: 20070518
  Receipt Date: 20070510
  Transmission Date: 20071010
  Serious: Yes (Hospitalization)
  Sender: FDA-Public Use
  Company Number: DE-SANOFI-SYNTHELABO-A04200700385

PATIENT
  Sex: Male
  Weight: 102 kg

DRUGS (9)
  1. NEUPOGEN [Concomitant]
     Indication: PROPHYLAXIS
     Dosage: ALTOGETHER 4 X
     Route: 058
     Dates: end: 20070227
  2. CLEXANE [Concomitant]
     Indication: PULMONARY EMBOLISM
     Route: 058
     Dates: start: 20060301
  3. GABAPENTIN [Concomitant]
     Indication: POLYNEUROPATHY
     Route: 048
     Dates: start: 20070227
  4. PANTOZOL [Concomitant]
     Indication: DRUG USE FOR UNKNOWN INDICATION
     Route: 048
  5. IBUPROFEN [Concomitant]
     Indication: BACK PAIN
     Route: 048
     Dates: start: 20070201, end: 20070201
  6. IBUPROFEN [Concomitant]
     Indication: CERVICOBRACHIAL SYNDROME
     Route: 048
     Dates: start: 20070201, end: 20070201
  7. FOLINIC ACID [Suspect]
     Indication: RECTAL CANCER STAGE IV
     Route: 041
     Dates: start: 20070201, end: 20070201
  8. FLUOROURACIL [Suspect]
     Indication: RECTAL CANCER STAGE IV
     Route: 041
     Dates: start: 20070201, end: 20070201
  9. ELOXATIN [Suspect]
     Indication: RECTAL CANCER STAGE IV
     Route: 041
     Dates: start: 20070227, end: 20070227

REACTIONS (5)
  - CHILLS [None]
  - CYANOSIS [None]
  - HYPERPYREXIA [None]
  - HYPERTENSIVE CRISIS [None]
  - TACHYCARDIA [None]
